FAERS Safety Report 6833817-4 (Version None)
Quarter: 2010Q3

REPORT INFORMATION
  Report Type: 
  Country: None (occurrence: None)
  Receive Date: 20100712
  Receipt Date: 20070403
  Transmission Date: 20110219
  Serious: No
  Sender: FDA-Public Use
  Company Number: US-PFIZER INC-2007027268

PATIENT

DRUGS (3)
  1. CHANTIX [Suspect]
  2. CRESTOR [Concomitant]
  3. LISINOPRIL [Concomitant]

REACTIONS (4)
  - FUNGAL INFECTION [None]
  - NAUSEA [None]
  - RASH [None]
  - SOMNOLENCE [None]
